FAERS Safety Report 14393434 (Version 1)
Quarter: 2018Q1

REPORT INFORMATION
  Report Type: Spontaneous
  Country: US (occurrence: US)
  Receive Date: 20180114
  Receipt Date: 20180114
  Transmission Date: 20180509
  Serious: Yes (Life-Threatening)
  Sender: FDA-Public Use
  Company Number: None

PATIENT
  Age: 59 Year
  Sex: Female
  Weight: 130.5 kg

DRUGS (8)
  1. LEVEMIER [Concomitant]
  2. TYLENOL [Concomitant]
     Active Substance: ACETAMINOPHEN
  3. SKELEXIN [Concomitant]
  4. VASOTEC [Concomitant]
     Active Substance: ENALAPRIL MALEATE
  5. NORVASC [Concomitant]
     Active Substance: AMLODIPINE BESYLATE
  6. ULTRAM [Concomitant]
     Active Substance: TRAMADOL HYDROCHLORIDE
  7. COMPLEX B VITAMINS [Concomitant]
  8. TRESIBA [Suspect]
     Active Substance: INSULIN DEGLUDEC
     Indication: DIABETES MELLITUS
     Dosage: ?          OTHER STRENGTH:UNITS/ML;QUANTITY:50 UNITS;?
     Route: 058
     Dates: start: 20170101, end: 20171101

REACTIONS (5)
  - Weight increased [None]
  - Peripheral swelling [None]
  - Therapy cessation [None]
  - Dyspnoea [None]
  - Anxiety [None]

NARRATIVE: CASE EVENT DATE: 20171104
